FAERS Safety Report 5474889-1 (Version None)
Quarter: 2007Q4

REPORT INFORMATION
  Report Type: 
  Country: None (occurrence: None)
  Receive Date: 20071002
  Receipt Date: 20070926
  Transmission Date: 20080405
  Serious: Yes (Death, Other)
  Sender: FDA-Public Use
  Company Number: JP-SANOFI-SYNTHELABO-F01200601315

PATIENT
  Sex: Female
  Weight: 50 kg

DRUGS (8)
  1. PHENOBARBITAL TAB [Concomitant]
     Indication: CONVULSION
     Route: 030
     Dates: start: 20060302, end: 20060310
  2. NAPROXEN [Concomitant]
     Indication: PYREXIA
     Route: 048
     Dates: start: 20060224, end: 20060224
  3. FLUOROURACIL [Suspect]
     Dosage: 540 MG (400 MG/M2) IV BOLUS FOLLOWED BY 810 MG (600 MG/M2) INFUSION ON D1+2
     Route: 042
     Dates: start: 20051012, end: 20051013
  4. OXALIPLATIN [Suspect]
     Indication: COLON CANCER
     Route: 042
     Dates: start: 20051012, end: 20051012
  5. VOLTAREN [Concomitant]
     Indication: PYREXIA
     Route: 048
     Dates: start: 20060223, end: 20060225
  6. DECADRON [Concomitant]
     Indication: PROPHYLAXIS OF NAUSEA AND VOMITING
     Route: 042
     Dates: start: 20060220, end: 20060222
  7. FIRSTCIN [Concomitant]
     Indication: INFECTION PROPHYLAXIS
     Dates: start: 20060213, end: 20060219
  8. LEUCOVORIN CALCIUM [Suspect]
     Dosage: INFUSION ON D1+2
     Route: 042
     Dates: start: 20051012, end: 20051013

REACTIONS (5)
  - HAEMOGLOBIN DECREASED [None]
  - LEUKOPENIA [None]
  - NEUTROPENIA [None]
  - SUBARACHNOID HAEMORRHAGE [None]
  - THROMBOCYTOPENIA [None]
